FAERS Safety Report 14637952 (Version 1)
Quarter: 2018Q1

REPORT INFORMATION
  Report Type: Spontaneous
  Country: FR (occurrence: FR)
  Receive Date: 20180314
  Receipt Date: 20180314
  Transmission Date: 20180509
  Serious: Yes (Hospitalization)
  Sender: FDA-Public Use
  Company Number: FR-TEVA-2018-FR-867616

PATIENT
  Age: 33 Year
  Sex: Female
  Weight: 48 kg

DRUGS (2)
  1. HYDROCHLOROTHIAZIDE. [Concomitant]
     Active Substance: HYDROCHLOROTHIAZIDE
  2. LISINOPRIL ANHYDRE [Suspect]
     Active Substance: LISINOPRIL
     Indication: HYPERTENSION
     Route: 048

REACTIONS (3)
  - Vomiting [Recovered/Resolved]
  - Angioedema [Recovering/Resolving]
  - Abdominal pain [Recovered/Resolved]
